FAERS Safety Report 8791748 (Version 1)
Quarter: 2012Q4

REPORT INFORMATION
  Report Type: 
  Country: US (occurrence: US)
  Receive Date: 20120918
  Receipt Date: 20120918
  Transmission Date: 20130627
  Serious: Yes (Other)
  Sender: FDA-Public Use
  Company Number: US-ARROW-2012-16005

PATIENT
  Age: 43 Year
  Sex: Female

DRUGS (3)
  1. MORPHINE SULFATE (UNKNOWN) [Suspect]
     Indication: NEURALGIA
     Dosage: 100 mg, bid
     Route: 048
  2. MORPHINE SULFATE (UNKNOWN) [Suspect]
     Dosage: 60 mg, q2h, prn
     Route: 060
  3. HYDROMORPHONE [Suspect]
     Indication: NEURALGIA
     Dosage: 8-16 mg, prn
     Route: 048

REACTIONS (5)
  - Hyperaesthesia [Recovered/Resolved]
  - Allodynia [Recovered/Resolved]
  - Oedema peripheral [None]
  - Abnormal dreams [None]
  - Formication [None]
